FAERS Safety Report 16581497 (Version 1)
Quarter: 2019Q3

REPORT INFORMATION
  Report Type: Spontaneous
  Country: US (occurrence: US)
  Receive Date: 20190716
  Receipt Date: 20190716
  Transmission Date: 20191004
  Serious: No
  Sender: FDA-Public Use
  Company Number: US-CHILTERN-US-2019-000492

PATIENT
  Age: 72 Year
  Sex: Female
  Weight: 59.86 kg

DRUGS (4)
  1. EXFORGE [Concomitant]
     Active Substance: AMLODIPINE BESYLATE\VALSARTAN
     Indication: BLOOD PRESSURE INCREASED
     Dosage: SEVERAL YEARS, QD
     Route: 048
  2. RHOPRESSA [Suspect]
     Active Substance: NETARSUDIL MESYLATE
     Indication: GLAUCOMA
     Dosage: 2 GTT, (1 DROP EACH EYE IN THE MORNING)
     Route: 047
     Dates: start: 20190319, end: 20190326
  3. ARTIFICIAL TEARS                   /00222401/ [Concomitant]
     Active Substance: PROPYLENE GLYCOL
     Indication: DRY EYE
     Dosage: IN BOTH EYES, PRN
     Route: 047
  4. VYZULTA [Concomitant]
     Active Substance: LATANOPROSTENE BUNOD
     Indication: GLAUCOMA
     Dosage: 1 GTT, EACH EYE NIGHTLY
     Route: 047
     Dates: start: 20181206, end: 20190326

REACTIONS (5)
  - Visual acuity reduced [Not Recovered/Not Resolved]
  - Lacrimation increased [Recovered/Resolved]
  - Conjunctival hyperaemia [Recovered/Resolved]
  - Off label use [Unknown]
  - Eye irritation [Recovered/Resolved]

NARRATIVE: CASE EVENT DATE: 20190321
